FAERS Safety Report 7899699-7 (Version None)
Quarter: 2011Q4

REPORT INFORMATION
  Report Type: 
  Country: None (occurrence: None)
  Receive Date: 20111107
  Receipt Date: 20110919
  Transmission Date: 20120403
  Serious: No
  Sender: FDA-Public Use
  Company Number: US-AMGEN-USASP2011045707

PATIENT
  Age: 57 Year
  Sex: Female
  Weight: 60.771 kg

DRUGS (4)
  1. CALCIUM + VITAMIN D [Concomitant]
     Dosage: 500 MG, QD
     Route: 048
  2. NAPROXEN [Concomitant]
     Indication: RHEUMATOID ARTHRITIS
     Dosage: 200 MG, BID
     Route: 048
  3. ENBREL [Suspect]
     Indication: RHEUMATOID ARTHRITIS
     Dosage: 50 MG, UNK
     Dates: start: 20110815
  4. VITAMIN B12                        /00056201/ [Concomitant]
     Dosage: UNK UNK, QD

REACTIONS (4)
  - INJECTION SITE ERYTHEMA [None]
  - INJECTION SITE SWELLING [None]
  - INJECTION SITE PRURITUS [None]
  - INJECTION SITE REACTION [None]
